FAERS Safety Report 8434164-X (Version None)
Quarter: 2012Q2

REPORT INFORMATION
  Report Type: 
  Country: None (occurrence: None)
  Receive Date: 20120613
  Receipt Date: 20120608
  Transmission Date: 20120825
  Serious: Yes (Other)
  Sender: FDA-Public Use
  Company Number: US-ACTELION-A-NJ2012-65135

PATIENT

DRUGS (6)
  1. PLAVIX [Concomitant]
  2. CALCIUM CHANNEL BLOCKERS [Concomitant]
  3. VENTAVIS [Suspect]
     Indication: PULMONARY ARTERIAL HYPERTENSION
     Dosage: UNK
     Route: 055
     Dates: start: 20120306
  4. ASPIRIN [Concomitant]
  5. TRACLEER [Concomitant]
     Indication: PULMONARY ARTERIAL HYPERTENSION
     Dosage: UNK
     Route: 048
     Dates: start: 20040823
  6. VENTAVIS [Suspect]
     Dosage: UNK
     Route: 055
     Dates: start: 20120101

REACTIONS (10)
  - THROAT IRRITATION [None]
  - DIZZINESS [None]
  - FLUSHING [None]
  - DYSGEUSIA [None]
  - COUGH [None]
  - DIZZINESS POSTURAL [None]
  - HYPOTENSION [None]
  - HICCUPS [None]
  - DIALYSIS [None]
  - EAR PAIN [None]
